FAERS Safety Report 4772349-4 (Version None)
Quarter: 2005Q3

REPORT INFORMATION
  Report Type: 
  Country: None (occurrence: None)
  Receive Date: 20050916
  Receipt Date: 20050907
  Transmission Date: 20060218
  Serious: Yes (Other)
  Sender: FDA-Public Use
  Company Number: 2005124931

PATIENT
  Age: 25 Year
  Sex: Female
  Weight: 142.8831 kg

DRUGS (1)
  1. SUDAFED 12 HOUR [Suspect]
     Dosage: 24 TABLETS AT ONCE, ORAL
     Route: 048
     Dates: start: 20050909, end: 20050907

REACTIONS (4)
  - MALAISE [None]
  - NAUSEA [None]
  - OVERDOSE [None]
  - VOMITING [None]
